FAERS Safety Report 9177984 (Version 2)
Quarter: 2013Q2

REPORT INFORMATION
  Report Type: Spontaneous
  Country: US (occurrence: None)
  Receive Date: 20120531
  Receipt Date: 20121130
  Transmission Date: 20140414
  Serious: Yes (Other)
  Sender: FDA-Public Use
  Company Number: US201203007339

PATIENT
  Age: 44 Year
  Sex: Female
  Weight: 87.5 kg

DRUGS (13)
  1. BYDUREON [Suspect]
     Indication: TYPE 2 DIABETES MELLITUS
     Route: 058
     Dates: start: 20120308, end: 20120329
  2. BYETTA [Suspect]
  3. METFORMIN (METFORMIN) ONGOING [Concomitant]
  4. JANUVIA (SITAGLIPTIN PHOSPHATE) [Concomitant]
  5. PROZAC (FLUOXETINE HYDROCHLORIDE) ONGOING [Concomitant]
  6. METOPROLOL SUCCINATE (METOPROLOL SUCCINATE) ONGOING [Concomitant]
  7. QUINAPRIL AND HYDROCHLOROTHIAZIDE (HYDROCHLOROTHIAZIDE, QUINAPRIL HYDROCHLORIDE) ONGOING [Concomitant]
  8. ZYRTEC (CETIRIZINE HYDROCHLORIDE) ONGOING [Concomitant]
  9. FISH OIL (FISH OIL) ONGOING [Concomitant]
  10. VITAMIN D (ERGOCALCIFEROL) ONGOING [Concomitant]
  11. MULTIVITAMIN (VITAMINS NOS) ONGOING [Concomitant]
  12. CRANBERRY (VACCINIUM MACROCARPON) ONGOING [Concomitant]
  13. PRILOSEC (OMEPRAZOLE) ONGOING [Concomitant]

REACTIONS (15)
  - Pruritus generalised [None]
  - Rash generalised [None]
  - Injection site cellulitis [None]
  - Injection site discolouration [None]
  - Blood glucose increased [None]
  - Injection site injury [None]
  - Injection site nodule [None]
  - Injection site haemorrhage [None]
  - Injection site haematoma [None]
  - Injection site pain [None]
  - Injection site erythema [None]
  - Injection site pruritus [None]
  - Injection site rash [None]
  - Injection site irritation [None]
  - Injection site cyst [None]
